FAERS Safety Report 8539593-1 (Version None)
Quarter: 2012Q3

REPORT INFORMATION
  Report Type: 
  Country: None (occurrence: None)
  Receive Date: 20120726
  Receipt Date: 20120712
  Transmission Date: 20120928
  Serious: Yes (Hospitalization)
  Sender: FDA-Public Use
  Company Number: SI-ELI_LILLY_AND_COMPANY-SI201205002235

PATIENT
  Sex: Female

DRUGS (7)
  1. QUETIAPINE FUMARATE [Concomitant]
     Dosage: 100 MG, QD
  2. OLANZAPINE [Suspect]
     Dosage: 300 MG, EVERY 2 WEEKS
     Route: 030
     Dates: start: 20120315
  3. ABILIFY [Concomitant]
     Dosage: 30 MG, QD
  4. INVEGA [Concomitant]
     Dosage: 3 MG, QD
     Dates: start: 20120412
  5. OLANZAPINE [Suspect]
     Indication: SCHIZOPHRENIA, PARANOID TYPE
     Dosage: 210 MG, WEEKLY (1/W)
     Route: 030
     Dates: start: 20120308, end: 20120308
  6. INVEGA [Concomitant]
     Dosage: 9 MG, QD
     Dates: end: 20120412
  7. SERTRALINE HYDROCHLORIDE [Concomitant]
     Dosage: 100 MG, QD

REACTIONS (12)
  - DELIRIUM [None]
  - DELUSION [None]
  - MALAISE [None]
  - TACHYCARDIA [None]
  - PYREXIA [None]
  - HALLUCINATION [None]
  - GAIT DISTURBANCE [None]
  - DISORIENTATION [None]
  - AGITATION [None]
  - DYSARTHRIA [None]
  - PARAESTHESIA [None]
  - MYDRIASIS [None]
